FAERS Safety Report 6159115-2 (Version None)
Quarter: 2009Q2

REPORT INFORMATION
  Report Type: 
  Country: None (occurrence: None)
  Receive Date: 20090417
  Receipt Date: 20090410
  Transmission Date: 20091009
  Serious: Yes (Other)
  Sender: FDA-Public Use
  Company Number: US-ELI_LILLY_AND_COMPANY-US200904002372

PATIENT
  Sex: Female

DRUGS (10)
  1. HUMULIN N [Suspect]
     Dates: start: 19940101, end: 20060101
  2. LANTUS [Concomitant]
     Indication: DIABETES MELLITUS
  3. NOVOLOG [Concomitant]
     Indication: DIABETES MELLITUS
  4. TOPROL-XL [Concomitant]
  5. COZAAR [Concomitant]
  6. LASIX [Concomitant]
  7. ASPIRIN [Concomitant]
     Dosage: 81 MG, UNK
  8. COUMADIN [Concomitant]
     Dosage: 2.5 MG, UNK
  9. SIMVASTATIN [Concomitant]
  10. BYETTA [Concomitant]
     Dates: start: 20061101, end: 20070401

REACTIONS (3)
  - CARDIAC DISORDER [None]
  - IMPLANTABLE DEFIBRILLATOR INSERTION [None]
  - MYOCARDIAL INFARCTION [None]
